FAERS Safety Report 22879356 (Version 2)
Quarter: 2023Q4

REPORT INFORMATION
  Report Type: Spontaneous
  Country: US (occurrence: US)
  Receive Date: 20230829
  Receipt Date: 20231002
  Transmission Date: 20240109
  Serious: Yes (Hospitalization, Other)
  Sender: FDA-Public Use
  Company Number: US-BRISTOL-MYERS SQUIBB COMPANY-2023-121532

PATIENT
  Sex: Male

DRUGS (3)
  1. ELIQUIS [Interacting]
     Active Substance: APIXABAN
     Indication: Cardiac disorder
  2. DILANTIN [Interacting]
     Active Substance: PHENYTOIN
     Indication: Epilepsy
  3. DILANTIN [Interacting]
     Active Substance: PHENYTOIN

REACTIONS (2)
  - Drug interaction [Unknown]
  - Epilepsy [Unknown]
